FAERS Safety Report 5549279-3 (Version None)
Quarter: 2007Q4

REPORT INFORMATION
  Report Type: 
  Country: None (occurrence: None)
  Receive Date: 20071211
  Receipt Date: 20071203
  Transmission Date: 20080405
  Serious: Yes (Hospitalization)
  Sender: FDA-Public Use
  Company Number: US-ELI_LILLY_AND_COMPANY-US200712000381

PATIENT
  Sex: Male

DRUGS (3)
  1. HUMALOG [Suspect]
     Indication: DIABETES MELLITUS
  2. LANTUS [Concomitant]
     Dosage: UNK, EACH EVENING
  3. LANTUS [Concomitant]
     Dosage: UNK, AS NEEDED

REACTIONS (7)
  - BLOOD GLUCOSE DECREASED [None]
  - BLOOD GLUCOSE INCREASED [None]
  - HEAD INJURY [None]
  - LOSS OF CONSCIOUSNESS [None]
  - NECK INJURY [None]
  - PROSTATIC DISORDER [None]
  - SPINAL FRACTURE [None]
